FAERS Safety Report 18847922 (Version 2)
Quarter: 2021Q2

REPORT INFORMATION
  Report Type: Spontaneous
  Country: US (occurrence: US)
  Receive Date: 20210204
  Receipt Date: 20210517
  Transmission Date: 20210717
  Serious: Yes (Other)
  Sender: FDA-Public Use
  Company Number: US-GLAXOSMITHKLINE-US2021GSK028536

PATIENT
  Sex: Male

DRUGS (2)
  1. RANITIDINE. [Suspect]
     Active Substance: RANITIDINE
     Indication: MYOCARDIAL INFARCTION
     Dosage: 300 MG
     Route: 065
     Dates: start: 200806, end: 202002
  2. RANITIDINE. [Suspect]
     Active Substance: RANITIDINE
     Indication: MYOCARDIAL INFARCTION
     Dosage: 300 MG
     Route: 065
     Dates: start: 200806, end: 202002

REACTIONS (1)
  - Prostate cancer [Unknown]
